FAERS Safety Report 20049586 (Version 2)
Quarter: 2021Q4

REPORT INFORMATION
  Report Type: Report from Study
  Country: DE (occurrence: DE)
  Receive Date: 20211109
  Receipt Date: 20211125
  Transmission Date: 20220303
  Serious: Yes (Death)
  Sender: FDA-Public Use
  Company Number: DE-ABBVIE-21K-062-4154745-00

PATIENT
  Age: 70 Year
  Sex: Male

DRUGS (2)
  1. HUMIRA [Suspect]
     Active Substance: ADALIMUMAB
     Indication: Psoriasis
     Route: 058
     Dates: start: 20130813, end: 20190304
  2. COSENTYX [Suspect]
     Active Substance: SECUKINUMAB
     Indication: Psoriasis
     Dosage: 150 FILLED PEN
     Route: 065
     Dates: start: 20190305, end: 20210306

REACTIONS (1)
  - Death [Fatal]

NARRATIVE: CASE EVENT DATE: 20210306
